FAERS Safety Report 6906206-1 (Version None)
Quarter: 2010Q3

REPORT INFORMATION
  Report Type: 
  Country: None (occurrence: None)
  Receive Date: 20100803
  Receipt Date: 20100803
  Transmission Date: 20110219
  Serious: Yes (Other)
  Sender: FDA-Public Use
  Company Number: None

PATIENT
  Age: 42 Year
  Sex: Female
  Weight: 74.8435 kg

DRUGS (1)
  1. OMEPRAZOLE MAGNESIUM 20.6 CVS PHARMACY DR. REDDY'S LAB [Suspect]
     Indication: GASTROOESOPHAGEAL REFLUX DISEASE
     Dosage: 20.6 MG CAPSULE ONE TIME PO
     Route: 048
     Dates: start: 20100731, end: 20100731

REACTIONS (12)
  - BLOOD PRESSURE INCREASED [None]
  - CARDIAC FLUTTER [None]
  - CHEST PAIN [None]
  - DIZZINESS [None]
  - DYSPNOEA [None]
  - FEELING ABNORMAL [None]
  - HYPERHIDROSIS [None]
  - NAUSEA [None]
  - PAIN IN JAW [None]
  - PALPITATIONS [None]
  - PULSE ABSENT [None]
  - TACHYCARDIA [None]
